FAERS Safety Report 7326073-4 (Version None)
Quarter: 2011Q1

REPORT INFORMATION
  Report Type: 
  Country: None (occurrence: None)
  Receive Date: 20110302
  Receipt Date: 20110224
  Transmission Date: 20110831
  Serious: Yes (Hospitalization)
  Sender: FDA-Public Use
  Company Number: BR-ROCHE-694138

PATIENT
  Sex: Male
  Weight: 89 kg

DRUGS (24)
  1. TOCILIZUMAB [Suspect]
     Route: 042
     Dates: start: 20100318
  2. FUROSEMIDE [Concomitant]
     Dosage: INTRAVENOUS ROUTE
     Route: 048
     Dates: start: 20100305
  3. CELECOXIB [Concomitant]
     Route: 048
     Dates: start: 20100330, end: 20100331
  4. MELOXICAM [Concomitant]
     Route: 048
     Dates: end: 20100326
  5. MELOXICAM [Concomitant]
     Route: 048
     Dates: start: 20100331, end: 20100407
  6. CORTICOSTEROIDS [Concomitant]
     Route: 048
  7. ENALAPRIL [Concomitant]
     Route: 048
     Dates: start: 20100331
  8. FUROSEMIDE [Concomitant]
     Dosage: INTRAVENOUS ROUTE.
     Route: 048
     Dates: start: 20100331, end: 20100401
  9. DIAZEPAM [Concomitant]
     Indication: DEPRESSION
     Route: 048
  10. BLINDED METHOTREXATE [Suspect]
     Indication: RHEUMATOID ARTHRITIS
     Dosage: EVERY WEEK, LAST DOSE: 25 MARCH 2010
     Route: 048
     Dates: start: 20100119, end: 20100415
  11. DICLOFENAC SODIUM [Concomitant]
     Route: 048
     Dates: start: 20100123, end: 20100124
  12. OMEPRAZOLE [Concomitant]
     Route: 048
     Dates: start: 20100328
  13. SERTRALINE [Concomitant]
     Indication: DEPRESSION
     Route: 048
  14. TOCILIZUMAB [Suspect]
     Indication: RHEUMATOID ARTHRITIS
     Dosage: DOSAGE FORM: 8 MG/KG, FORM: INFUSION
     Route: 042
     Dates: start: 20100119
  15. TOCILIZUMAB [Suspect]
     Route: 042
     Dates: start: 20100218
  16. OMEPRAZOLE [Concomitant]
     Indication: PROPHYLAXIS
     Route: 048
     Dates: end: 20100326
  17. FUROSEMIDE [Concomitant]
     Dosage: ORAL ROUTE.
     Route: 048
     Dates: end: 20100326
  18. FUROSEMIDE [Concomitant]
     Dosage: INTRAVENOUS ROUTE
     Route: 048
     Dates: start: 20100401, end: 20100405
  19. FOLIC ACID [Concomitant]
     Indication: DRUG TOXICITY PROPHYLAXIS
     Route: 048
  20. DIPYRONE [Concomitant]
     Dosage: AS REQUIRED
     Route: 048
     Dates: end: 20100326
  21. DIPYRONE [Concomitant]
     Dosage: AR REQUIRED, INTRAVENOUS ROUTE.
     Route: 048
     Dates: start: 20100326
  22. PREDNISONE [Suspect]
     Indication: RHEUMATOID ARTHRITIS
     Dosage: TOTAL DAILY DOSE 10
     Route: 065
     Dates: start: 20091223
  23. ENALAPRIL [Concomitant]
     Indication: HYPERTENSION
     Route: 048
     Dates: end: 20100326
  24. AZATHIOPRINE SODIUM [Concomitant]
     Route: 048

REACTIONS (2)
  - CELLULITIS [None]
  - ARTHRITIS BACTERIAL [None]
